FAERS Safety Report 5722200-0 (Version None)
Quarter: 2008Q2

REPORT INFORMATION
  Report Type: 
  Country: None (occurrence: None)
  Receive Date: 20080429
  Receipt Date: 20080423
  Transmission Date: 20081010
  Serious: Yes (Hospitalization)
  Sender: FDA-Public Use
  Company Number: US-BAXTER-2008BH004239

PATIENT
  Age: 65 Year
  Sex: Male
  Weight: 78 kg

DRUGS (6)
  1. HEPARIN SODIUM 5,000 UNITS IN DEXTROSE 5% [Suspect]
     Indication: DRUG USE FOR UNKNOWN INDICATION
     Route: 042
     Dates: start: 20070707
  2. HEPARIN SODIUM 5,000 UNITS IN DEXTROSE 5% [Suspect]
     Route: 042
     Dates: start: 20070709
  3. HEPARIN SODIUM 5,000 UNITS IN DEXTROSE 5% [Suspect]
     Route: 042
     Dates: start: 20070718, end: 20070701
  4. METHIMAZOLE [Concomitant]
     Indication: THYROID DISORDER
     Route: 048
     Dates: end: 20070701
  5. METHIMAZOLE [Concomitant]
     Route: 048
     Dates: start: 20070701, end: 20070101
  6. METHIMAZOLE [Concomitant]
     Route: 048
     Dates: start: 20070101

REACTIONS (5)
  - BLOOD GLUCOSE INCREASED [None]
  - PLATELET COUNT DECREASED [None]
  - PNEUMONIA [None]
  - THROMBOSIS [None]
  - THYROID DISORDER [None]
